FAERS Safety Report 4269625-0 (Version None)
Quarter: 2004Q1

REPORT INFORMATION
  Report Type: 
  Country: None (occurrence: None)
  Receive Date: 20040112
  Receipt Date: 20031226
  Transmission Date: 20041129
  Serious: Yes (Hospitalization)
  Sender: FDA-Public Use
  Company Number: 2003IM001232

PATIENT
  Age: 58 Year
  Sex: Female

DRUGS (1)
  1. INFERGEN [Suspect]
     Indication: HEPATITIS C
     Dosage: 12 MU; QOD; SUBCUTANEOUS
     Route: 058
     Dates: start: 20020807, end: 20030509

REACTIONS (1)
  - HAEMORRHAGE SUBCUTANEOUS [None]
